FAERS Safety Report 4650298-X (Version None)
Quarter: 2005Q2

REPORT INFORMATION
  Report Type: 
  Country: None (occurrence: None)
  Receive Date: 20050428
  Receipt Date: 20050418
  Transmission Date: 20051028
  Serious: Yes (Life-Threatening, Hospitalization)
  Sender: FDA-Public Use
  Company Number: 2005-BP-06267BP

PATIENT
  Age: 5 Month
  Sex: Female

DRUGS (1)
  1. CATAPRES [Suspect]
     Indication: HYPERTENSION
     Dosage: 0.1 MG (2.5 MG), TO
     Dates: start: 20050314

REACTIONS (6)
  - BLOOD PRESSURE INADEQUATELY CONTROLLED [None]
  - CIRCULATORY COLLAPSE [None]
  - CRYING [None]
  - DEPRESSED LEVEL OF CONSCIOUSNESS [None]
  - PALLOR [None]
  - RESPIRATORY DISORDER [None]
